FAERS Safety Report 17982815 (Version 1)
Quarter: 2020Q3

REPORT INFORMATION
  Report Type: Spontaneous
  Country: CA (occurrence: CA)
  Receive Date: 20200706
  Receipt Date: 20200706
  Transmission Date: 20201103
  Serious: Yes (Hospitalization, Other)
  Sender: FDA-Public Use
  Company Number: CA-TEVA-2020-CA-1796624

PATIENT
  Age: 7 Year
  Sex: Female

DRUGS (5)
  1. CISPLATIN INJECTION, BP SINGLE DOSE VIALS.10MG/10ML AND50MG/50ML .PRES [Suspect]
     Active Substance: CISPLATIN
     Dosage: SOLUTION INTRAVENOUS
  2. PEGFILGRASTIM [Concomitant]
     Active Substance: PEGFILGRASTIM
  3. DEXAMETHASONE. [Concomitant]
     Active Substance: DEXAMETHASONE
     Dosage: LIQUID INTRAARTICULAR
  4. GRANISETRON [Concomitant]
     Active Substance: GRANISETRON
  5. DOXORUBICIN INJECTION [Suspect]
     Active Substance: DOXORUBICIN
     Dosage: SOLUTION INTRAVENOUS

REACTIONS (1)
  - Febrile neutropenia [Recovering/Resolving]
